FAERS Safety Report 10264498 (Version 2)
Quarter: 2014Q4

REPORT INFORMATION
  Report Type: Spontaneous
  Country: EG (occurrence: EG)
  Receive Date: 20140627
  Receipt Date: 20141024
  Transmission Date: 20150528
  Serious: Yes (Death, Disabling, Other)
  Sender: FDA-Public Use
  Company Number: EG-ROCHE-1424551

PATIENT
  Age: 56 Year
  Sex: Female

DRUGS (3)
  1. HERCEPTIN [Suspect]
     Active Substance: TRASTUZUMAB
     Indication: BREAST CANCER METASTATIC
     Route: 037
  2. KADCYLA [Suspect]
     Active Substance: ADO-TRASTUZUMAB EMTANSINE
     Indication: BREAST CANCER
     Route: 065
  3. PERJETA [Suspect]
     Active Substance: PERTUZUMAB
     Indication: BREAST CANCER METASTATIC
     Route: 065

REACTIONS (3)
  - Dementia [Unknown]
  - Disease progression [Fatal]
  - Fatigue [Not Recovered/Not Resolved]
